FAERS Safety Report 10723687 (Version 1)
Quarter: 2015Q1

REPORT INFORMATION
  Report Type: Spontaneous
  Country: US (occurrence: None)
  Receive Date: 20150116
  Receipt Date: 20150116
  Transmission Date: 20150721
  Serious: Yes (Other)
  Sender: FDA-Public Use
  Company Number: None

PATIENT
  Age: 49 Year
  Sex: Female

DRUGS (2)
  1. OLYSIO [Suspect]
     Active Substance: SIMEPREVIR
     Indication: HEPATITIS C
     Route: 048
     Dates: start: 20141126
  2. SOVALDI [Suspect]
     Active Substance: SOFOSBUVIR
     Indication: HEPATITIS C
     Route: 048
     Dates: start: 20141126

REACTIONS (6)
  - Diarrhoea [None]
  - Headache [None]
  - Fatigue [None]
  - Asthenia [None]
  - Myalgia [None]
  - Abdominal pain upper [None]

NARRATIVE: CASE EVENT DATE: 20141201
